FAERS Safety Report 4620352-7 (Version None)
Quarter: 2005Q1

REPORT INFORMATION
  Report Type: 
  Country: None (occurrence: None)
  Receive Date: 20050324
  Receipt Date: 20050310
  Transmission Date: 20050727
  Serious: Yes (Death)
  Sender: FDA-Public Use
  Company Number: HQWYE066911MAR05

PATIENT
  Sex: Male

DRUGS (1)
  1. PHENERGAN [Suspect]
     Dosage: 1 TABLET 1 X PER 1 TOT
     Dates: start: 20040101, end: 20040101

REACTIONS (1)
  - DEATH [None]
